FAERS Safety Report 18674229 (Version 1)
Quarter: 2020Q4

REPORT INFORMATION
  Report Type: Spontaneous
  Country: US (occurrence: US)
  Receive Date: 20201224
  Receipt Date: 20201224
  Transmission Date: 20210114
  Serious: Yes (Hospitalization)
  Sender: FDA-Public Use
  Company Number: None

PATIENT
  Age: 73 Year
  Sex: Male

DRUGS (8)
  1. ESBRIET [Suspect]
     Active Substance: PIRFENIDONE
     Indication: IDIOPATHIC PULMONARY FIBROSIS
     Route: 048
     Dates: start: 20200819
  2. GLUTAMINE [Concomitant]
     Active Substance: GLUTAMINE
  3. VITAMIN D [Concomitant]
     Active Substance: VITAMIN D NOS
  4. CARVEDILOL. [Concomitant]
     Active Substance: CARVEDILOL
  5. DOFETILIDE. [Concomitant]
     Active Substance: DOFETILIDE
  6. MULTIVITAMIN ADULTS [Concomitant]
  7. REPATHA [Suspect]
     Active Substance: EVOLOCUMAB
     Dates: start: 20191027
  8. PREDNISONE. [Concomitant]
     Active Substance: PREDNISONE

REACTIONS (2)
  - Therapy interrupted [None]
  - Hospitalisation [None]

NARRATIVE: CASE EVENT DATE: 20201224
